FAERS Safety Report 8367029-2 (Version None)
Quarter: 2012Q2

REPORT INFORMATION
  Report Type: 
  Country: None (occurrence: None)
  Receive Date: 20120515
  Receipt Date: 20120515
  Transmission Date: 20120825
  Serious: No
  Sender: FDA-Public Use
  Company Number: None

PATIENT
  Age: 20 Year
  Sex: Male

DRUGS (14)
  1. CYCLOSPORINE [Suspect]
     Dates: start: 20101002, end: 20101022
  2. SILYBUM MARIANUM [Concomitant]
  3. TRIAMCINOLONE [Concomitant]
  4. QUETIAPINE [Concomitant]
  5. TRIAMCINOLONE [Concomitant]
  6. DIPHENHYDRAMINE HCL [Concomitant]
  7. BENADRYL [Concomitant]
  8. BACTRIM [Concomitant]
  9. NEORAL [Concomitant]
  10. VITAMIN-B-KOMPLEX STANDARD [Concomitant]
  11. CYCLOSPORINE [Concomitant]
  12. SULFAMETHOXAZOLE AND TRIMETHOPRIM [Concomitant]
  13. FISH OIL W/TOCOPHEROL [Concomitant]
  14. TUBERCULIN NOS [Concomitant]

REACTIONS (4)
  - DRUG-INDUCED LIVER INJURY [None]
  - ALANINE AMINOTRANSFERASE INCREASED [None]
  - ASPARTATE AMINOTRANSFERASE INCREASED [None]
  - HEPATITIS C VIRUS TEST POSITIVE [None]
